FAERS Safety Report 12681077 (Version 1)
Quarter: 2016Q3

REPORT INFORMATION
  Report Type: Spontaneous
  Country: SE (occurrence: SE)
  Receive Date: 20160824
  Receipt Date: 20160824
  Transmission Date: 20161109
  Serious: Yes (Other)
  Sender: FDA-Public Use
  Company Number: SE-ELI_LILLY_AND_COMPANY-SE201605005905

PATIENT
  Age: 33 Year
  Sex: Male

DRUGS (1)
  1. ZYPADHERA [Suspect]
     Active Substance: OLANZAPINE PAMOATE
     Indication: PSYCHOTIC DISORDER
     Dosage: UNK, UNKNOWN
     Route: 030
     Dates: start: 2015, end: 201604

REACTIONS (3)
  - Pyrexia [Recovered/Resolved]
  - Erythema [Recovered/Resolved]
  - Swelling [Recovered/Resolved]
